FAERS Safety Report 6239690-X (Version None)
Quarter: 2009Q2

REPORT INFORMATION
  Report Type: 
  Country: None (occurrence: None)
  Receive Date: 20090619
  Receipt Date: 20090605
  Transmission Date: 20091009
  Serious: Yes (Other)
  Sender: FDA-Public Use
  Company Number: DSU-2009-01203

PATIENT
  Age: 63 Year
  Sex: Female
  Weight: 103 kg

DRUGS (2)
  1. OLMESARTAN MEDOXOMIL [Suspect]
     Indication: HYPERTENSION
     Dosage: 20 MG , PER ORAL
     Route: 048
     Dates: start: 20040101
  2. UNSPECIFIED PHARMACY-COMPOUNDED MEDICATION TO ^REMOVE BODY FAT^ [Concomitant]

REACTIONS (5)
  - BLOOD PRESSURE INCREASED [None]
  - HEADACHE [None]
  - NAUSEA [None]
  - NECK PAIN [None]
  - NERVOUSNESS [None]
